FAERS Safety Report 16089092 (Version 1)
Quarter: 2019Q1

REPORT INFORMATION
  Report Type: Spontaneous
  Country: US (occurrence: US)
  Receive Date: 20190319
  Receipt Date: 20190319
  Transmission Date: 20190418
  Serious: Yes (Other)
  Sender: FDA-Public Use
  Company Number: US-B.I. PHARMACEUTICALS,INC./RIDGEFIELD-2019-BI-011388

PATIENT
  Age: 69 Year
  Sex: Male

DRUGS (2)
  1. GILOTRIF [Suspect]
     Active Substance: AFATINIB
     Indication: ACQUIRED GENE MUTATION
     Route: 065
     Dates: start: 201809
  2. GILOTRIF [Suspect]
     Active Substance: AFATINIB
     Indication: GASTROINTESTINAL NEOPLASM

REACTIONS (4)
  - Diarrhoea [Unknown]
  - Off label use [Unknown]
  - Malignant neoplasm progression [Unknown]
  - Dermatitis acneiform [Unknown]
